FAERS Safety Report 22594699 (Version 2)
Quarter: 2024Q4

REPORT INFORMATION
  Report Type: Report from Study
  Country: US (occurrence: US)
  Receive Date: 20230613
  Receipt Date: 20241014
  Transmission Date: 20250115
  Serious: Yes (Other)
  Sender: ABBVIE
  Company Number: US-ABBVIE-4300552

PATIENT
  Sex: Female

DRUGS (1)
  1. HUMIRA [Suspect]
     Active Substance: ADALIMUMAB
     Indication: Crohn^s disease
     Dosage: CITRATE FREE
     Route: 058
     Dates: start: 20200312

REACTIONS (24)
  - Foot deformity [Recovering/Resolving]
  - Hypertension [Recovering/Resolving]
  - Dyslexia [Recovering/Resolving]
  - Atrial fibrillation [Recovering/Resolving]
  - Myopia [Not Recovered/Not Resolved]
  - Weight fluctuation [Not Recovered/Not Resolved]
  - Uterine leiomyoma [Not Recovered/Not Resolved]
  - Hypoglycaemia [Not Recovered/Not Resolved]
  - Food allergy [Recovered/Resolved]
  - Irritability [Recovering/Resolving]
  - Gastrooesophageal reflux disease [Recovering/Resolving]
  - Mitral valve incompetence [Recovering/Resolving]
  - Mental disorder [Recovering/Resolving]
  - Visual impairment [Not Recovered/Not Resolved]
  - Tongue ulceration [Recovering/Resolving]
  - Hypoacusis [Recovering/Resolving]
  - Dizziness [Not Recovered/Not Resolved]
  - Impaired healing [Recovering/Resolving]
  - Headache [Recovered/Resolved]
  - Fatigue [Recovering/Resolving]
  - Seasonal allergy [Recovering/Resolving]
  - General physical health deterioration [Recovering/Resolving]
  - Loss of consciousness [Not Recovered/Not Resolved]
  - Dermatitis allergic [Recovered/Resolved]
